FAERS Safety Report 19110284 (Version 1)
Quarter: 2021Q2

REPORT INFORMATION
  Report Type: Report from Study
  Country: DE (occurrence: DE)
  Receive Date: 20210408
  Receipt Date: 20210408
  Transmission Date: 20210717
  Serious: Yes (Hospitalization, Other)
  Sender: FDA-Public Use
  Company Number: DE-TAKEDA-2020TUS059381

PATIENT
  Age: 10 Year
  Sex: Male
  Weight: 29 kg

DRUGS (4)
  1. TEDUGLUTIDE [Suspect]
     Active Substance: TEDUGLUTIDE
     Indication: SHORT-BOWEL SYNDROME
     Dosage: 0.14 ML/5 MG VIAL, QD
     Route: 058
     Dates: start: 20201216, end: 20210328
  2. TEDUGLUTIDE [Suspect]
     Active Substance: TEDUGLUTIDE
     Indication: SHORT-BOWEL SYNDROME
     Dosage: 0.14 ML/5 MG VIAL, QD
     Route: 058
     Dates: start: 20201216, end: 20210328
  3. TEDUGLUTIDE [Suspect]
     Active Substance: TEDUGLUTIDE
     Indication: SHORT-BOWEL SYNDROME
     Dosage: 0.14 ML/5 MG VIAL, QD
     Route: 058
     Dates: start: 20201216, end: 20210328
  4. TEDUGLUTIDE [Suspect]
     Active Substance: TEDUGLUTIDE
     Indication: SHORT-BOWEL SYNDROME
     Dosage: 0.14 ML/5 MG VIAL, QD
     Route: 058
     Dates: start: 20201216, end: 20210328

REACTIONS (3)
  - Complication associated with device [Recovered/Resolved]
  - Vitamin K deficiency [Recovering/Resolving]
  - Vitamin D deficiency [Recovering/Resolving]

NARRATIVE: CASE EVENT DATE: 20201216
